FAERS Safety Report 23935226 (Version 1)
Quarter: 2024Q2

REPORT INFORMATION
  Report Type: Spontaneous
  Country: FR (occurrence: FR)
  Receive Date: 20240604
  Receipt Date: 20240604
  Transmission Date: 20240715
  Serious: Yes (Other)
  Sender: FDA-Public Use
  Company Number: FR-ABBVIE-5785817

PATIENT
  Age: 73 Year
  Sex: Male

DRUGS (2)
  1. BRIMONIDINE TARTRATE\TIMOLOL MALEATE [Suspect]
     Active Substance: BRIMONIDINE TARTRATE\TIMOLOL MALEATE
     Indication: Open angle glaucoma
     Dosage: BRIMONIDINE 0.2%-TIMOLOL 0.5%
     Route: 047
  2. BIMATOPROST\TIMOLOL [Concomitant]
     Active Substance: BIMATOPROST\TIMOLOL
     Indication: Open angle glaucoma
     Dosage: BIMATOPROST 0.03%-TIMOLOL 0.5%
     Route: 065

REACTIONS (1)
  - Keratitis interstitial [Unknown]
